FAERS Safety Report 13793647 (Version 1)
Quarter: 2017Q3

REPORT INFORMATION
  Report Type: Spontaneous
  Country: US (occurrence: US)
  Receive Date: 20170726
  Receipt Date: 20170726
  Transmission Date: 20171127
  Serious: No
  Sender: FDA-Public Use
  Company Number: US-TARO-2017TAR00093

PATIENT
  Age: 3 Year
  Sex: Male

DRUGS (2)
  1. CETIRIZINE HCL SYRUP 1MG/ML RX [Suspect]
     Active Substance: CETIRIZINE HYDROCHLORIDE
     Indication: RASH
     Dosage: 5 MG, ONCE
     Dates: start: 20170210
  2. CETIRIZINE HCL SYRUP 1MG/ML RX [Suspect]
     Active Substance: CETIRIZINE HYDROCHLORIDE
     Dosage: 5 MG, ONCE
     Dates: start: 20170210

REACTIONS (2)
  - Somnolence [Not Recovered/Not Resolved]
  - Accidental overdose [Unknown]

NARRATIVE: CASE EVENT DATE: 20170210
